FAERS Safety Report 9764671 (Version 1)
Quarter: 2013Q4

REPORT INFORMATION
  Report Type: Spontaneous
  Country: US (occurrence: None)
  Receive Date: 20131216
  Receipt Date: 20131216
  Transmission Date: 20140711
  Serious: Yes (Disabling)
  Sender: FDA-Public Use
  Company Number: None

PATIENT
  Age: 30 Year
  Sex: Female
  Weight: 72.58 kg

DRUGS (1)
  1. BUPROPION XL [Suspect]
     Indication: DEPRESSION
     Dosage: 1 PILL; ONCE DAILY
     Route: 048
     Dates: start: 20131205, end: 20131212

REACTIONS (5)
  - Drug ineffective [None]
  - Disturbance in attention [None]
  - Tachyphrenia [None]
  - Gastric disorder [None]
  - Product substitution issue [None]
